FAERS Safety Report 19699318 (Version 1)
Quarter: 2021Q3

REPORT INFORMATION
  Report Type: Spontaneous
  Country: FR (occurrence: FR)
  Receive Date: 20210813
  Receipt Date: 20210813
  Transmission Date: 20211014
  Serious: Yes (Hospitalization)
  Sender: FDA-Public Use
  Company Number: NVSC2021FR176795

PATIENT
  Age: 83 Year
  Sex: Female
  Weight: 91 kg

DRUGS (1)
  1. CLINDAMYCIN. [Suspect]
     Active Substance: CLINDAMYCIN
     Indication: ERYSIPELAS
     Dosage: 1800 MG, QD
     Route: 048
     Dates: start: 20210514, end: 20210519

REACTIONS (3)
  - Nausea [Recovered/Resolved]
  - Vomiting [Recovered/Resolved]
  - Oesophageal pain [Recovered/Resolved]

NARRATIVE: CASE EVENT DATE: 20210516
